FAERS Safety Report 11116686 (Version 2)
Quarter: 2015Q2

REPORT INFORMATION
  Report Type: Report from Study
  Country: JP (occurrence: JP)
  Receive Date: 20150515
  Receipt Date: 20150612
  Transmission Date: 20150821
  Serious: Yes (Hospitalization)
  Sender: FDA-Public Use
  Company Number: JP-ASTRAZENECA-2015SE44864

PATIENT
  Age: 25161 Day
  Sex: Female

DRUGS (3)
  1. ACTOS [Concomitant]
     Active Substance: PIOGLITAZONE HYDROCHLORIDE
     Dates: end: 20131231
  2. ONGLYZA [Suspect]
     Active Substance: SAXAGLIPTIN HYDROCHLORIDE
     Indication: TYPE 2 DIABETES MELLITUS
     Route: 048
     Dates: start: 20131105, end: 20140714
  3. AMARYL [Concomitant]
     Active Substance: GLIMEPIRIDE
     Dates: end: 20140714

REACTIONS (1)
  - Muscle abscess [Recovered/Resolved]

NARRATIVE: CASE EVENT DATE: 20140622
